FAERS Safety Report 7986711-X (Version None)
Quarter: 2011Q4

REPORT INFORMATION
  Report Type: 
  Country: None (occurrence: None)
  Receive Date: 20111216
  Receipt Date: 20110817
  Transmission Date: 20120403
  Serious: No
  Sender: FDA-Public Use
  Company Number: US-BRISTOL-MYERS SQUIBB COMPANY-15979248

PATIENT
  Age: 16 Year
  Sex: Female

DRUGS (5)
  1. ABILIFY [Suspect]
     Indication: BIPOLAR DISORDER
     Dosage: DOSAGE: 40MG AT NIGHT AND AGAIN MORNING 35MG.
  2. ABILIFY [Suspect]
     Indication: MAJOR DEPRESSION
     Dosage: DOSAGE: 40MG AT NIGHT AND AGAIN MORNING 35MG.
  3. LAMICTAL [Concomitant]
  4. CONCERTA [Concomitant]
  5. INDERAL [Concomitant]

REACTIONS (2)
  - OVERDOSE [None]
  - MEDICATION ERROR [None]
